FAERS Safety Report 7986916-8 (Version None)
Quarter: 2011Q4

REPORT INFORMATION
  Report Type: 
  Country: None (occurrence: None)
  Receive Date: 20111216
  Receipt Date: 20111028
  Transmission Date: 20120403
  Serious: No
  Sender: FDA-Public Use
  Company Number: US-BRISTOL-MYERS SQUIBB COMPANY-16034308

PATIENT
  Age: 47 Year
  Sex: Female
  Weight: 113 kg

DRUGS (14)
  1. LEVOTHYROXINE SODIUM [Concomitant]
  2. DEPAKOTE [Concomitant]
  3. LUVOX [Concomitant]
  4. KLONOPIN [Concomitant]
  5. VENLAFAXINE HCL [Concomitant]
  6. NUVIGIL [Concomitant]
     Dosage: NUVIGIL PILL
  7. PRISTIQ [Concomitant]
  8. THYROID TAB [Concomitant]
  9. EFFEXOR [Concomitant]
  10. AMBIEN [Concomitant]
  11. CYMBALTA [Concomitant]
  12. ALPRAZOLAM [Concomitant]
  13. LEXAPRO [Concomitant]
  14. ABILIFY [Suspect]
     Indication: BIPOLAR DISORDER
     Dosage: STARTED WITH 5MG
     Route: 048
     Dates: start: 20050928, end: 20101201

REACTIONS (3)
  - DYSKINESIA [None]
  - TREMOR [None]
  - NEUROPATHY PERIPHERAL [None]
